FAERS Safety Report 18901304 (Version 1)
Quarter: 2021Q1

REPORT INFORMATION
  Report Type: Spontaneous
  Country: US (occurrence: US)
  Receive Date: 20210217
  Receipt Date: 20210217
  Transmission Date: 20210420
  Serious: No
  Sender: FDA-Public Use
  Company Number: US-CIPLA LTD.-2020US09364

PATIENT

DRUGS (3)
  1. DICLOFENAC [Suspect]
     Active Substance: DICLOFENAC
     Indication: ARTHRALGIA
     Dosage: UNK
     Route: 061
  2. DICLOFENAC [Suspect]
     Active Substance: DICLOFENAC
     Indication: JOINT SWELLING
  3. DICLOFENAC [Suspect]
     Active Substance: DICLOFENAC
     Indication: PERIPHERAL SWELLING

REACTIONS (5)
  - Therapeutic product effect variable [Unknown]
  - Product use in unapproved indication [Unknown]
  - Therapeutic response unexpected [Unknown]
  - Product container issue [Unknown]
  - Off label use [Unknown]
